FAERS Safety Report 5655416-2 (Version None)
Quarter: 2008Q1

REPORT INFORMATION
  Report Type: 
  Country: None (occurrence: None)
  Receive Date: 20080307
  Receipt Date: 20080226
  Transmission Date: 20080703
  Serious: Yes (Other)
  Sender: FDA-Public Use
  Company Number: BE-WYE-H02978708

PATIENT

DRUGS (5)
  1. SIROLIMUS [Suspect]
     Indication: IMMUNOSUPPRESSION
     Dosage: LOADING DOSE OF 0.2 MG/KG/DAY AND 0.1 MG/KG/DAY THEREAFTER
     Route: 048
  2. METHYLPREDNISOLONE [Concomitant]
     Indication: IMMUNOSUPPRESSION
     Dosage: 500 MG ONCE - THREE HOURS BEFORE TRANSPLANT
     Route: 042
  3. INSULIN [Concomitant]
     Indication: TYPE 1 DIABETES MELLITUS
     Dosage: VARIABLE DOSE TO KEEP BLOOD GLUCOSE BETWEEN 80-140 MG/DL
     Route: 042
  4. INSULIN [Concomitant]
     Dosage: VARIABLE DOSE TO KEEP BLOOD GLUCOSE BETWEEN 70-180 MG/DL
     Route: 065
  5. ANTITHYMOCYTE IMMUNOGLOBULIN [Concomitant]
     Indication: IMMUNOSUPPRESSION
     Dosage: 9 MG/KG THE DAY BEFORE TRANSPLANT, THEN 3 MG/KG FOR 6 DAYS
     Route: 065

REACTIONS (1)
  - COMPLICATIONS OF TRANSPLANT SURGERY [None]
